FAERS Safety Report 9385219 (Version 1)
Quarter: 2013Q3

REPORT INFORMATION
  Report Type: Spontaneous
  Country: IE (occurrence: IE)
  Receive Date: 20130705
  Receipt Date: 20130705
  Transmission Date: 20140515
  Serious: No
  Sender: FDA-Public Use
  Company Number: IE-B.I. PHARMACEUTICALS,INC./RIDGEFIELD-2013-UK-01348UK

PATIENT
  Age: 62 Year
  Sex: Male

DRUGS (2)
  1. PRADAXA [Suspect]
     Indication: ATRIAL FIBRILLATION
     Dosage: 150 MG
  2. PRADAXA [Suspect]
     Indication: ATRIAL FLUTTER
     Dosage: 300 MG

REACTIONS (1)
  - Malaise [Unknown]
